FAERS Safety Report 19945235 (Version 1)
Quarter: 2021Q4

REPORT INFORMATION
  Report Type: Spontaneous
  Country: CA (occurrence: CA)
  Receive Date: 20211012
  Receipt Date: 20211012
  Transmission Date: 20220303
  Serious: Yes (Hospitalization)
  Sender: FDA-Public Use
  Company Number: CA-ELI_LILLY_AND_COMPANY-CA202110000581

PATIENT
  Age: 67 Year
  Sex: Female

DRUGS (1)
  1. INSULIN HUMAN [Suspect]
     Active Substance: INSULIN HUMAN
     Indication: Diabetes mellitus
     Dosage: UNK UNK, UNKNOWN
     Route: 058
     Dates: start: 2011

REACTIONS (7)
  - Blood glucose increased [Recovering/Resolving]
  - Coeliac disease [Unknown]
  - Ulcer [Unknown]
  - Fall [Unknown]
  - Injury [Unknown]
  - Wrist fracture [Unknown]
  - Balance disorder [Unknown]

NARRATIVE: CASE EVENT DATE: 20110101
